FAERS Safety Report 24202708 (Version 1)
Quarter: 2024Q3

REPORT INFORMATION
  Report Type: Spontaneous
  Country: US (occurrence: US)
  Receive Date: 20240813
  Receipt Date: 20240813
  Transmission Date: 20241016
  Serious: No
  Sender: TEVA
  Company Number: US-TEVA-VS-3227661

PATIENT
  Age: 35 Year
  Sex: Female
  Weight: 77.11 kg

DRUGS (2)
  1. AJOVY [Suspect]
     Active Substance: FREMANEZUMAB-VFRM
     Indication: Migraine
     Dosage: 225/1.5 MG/ML, LAST DOSE ADMINISTERED: 12JUL2024
     Route: 065
  2. triptan [Concomitant]
     Indication: Product used for unknown indication

REACTIONS (4)
  - Injection site haemorrhage [Recovered/Resolved]
  - Injection site urticaria [Unknown]
  - Injection site bruising [Recovering/Resolving]
  - Injection site pruritus [Unknown]

NARRATIVE: CASE EVENT DATE: 20240401
